FAERS Safety Report 12113747 (Version 1)
Quarter: 2016Q1

REPORT INFORMATION
  Report Type: Spontaneous
  Country: US (occurrence: US)
  Receive Date: 20160225
  Receipt Date: 20160225
  Transmission Date: 20160526
  Serious: Yes (Other)
  Sender: FDA-Public Use
  Company Number: US-BEH-2016058953

PATIENT
  Sex: Female
  Weight: 53 kg

DRUGS (16)
  1. SYMBICORT [Concomitant]
     Active Substance: BUDESONIDE\FORMOTEROL FUMARATE DIHYDRATE
  2. MUCINEX [Concomitant]
     Active Substance: GUAIFENESIN
  3. NORMAL SALINE [Concomitant]
     Active Substance: SODIUM CHLORIDE
  4. SODIUM CHLORIDE. [Concomitant]
     Active Substance: SODIUM CHLORIDE
  5. SYNTHROID [Concomitant]
     Active Substance: LEVOTHYROXINE SODIUM
  6. ATENOLOL. [Concomitant]
     Active Substance: ATENOLOL
  7. CALCIUM [Concomitant]
     Active Substance: CALCIUM
  8. LOPERAMIDE [Concomitant]
     Active Substance: LOPERAMIDE
  9. PREDNISONE. [Concomitant]
     Active Substance: PREDNISONE
  10. FOSAMAX [Concomitant]
     Active Substance: ALENDRONATE SODIUM
  11. VITAMIN C [Concomitant]
     Active Substance: ASCORBIC ACID
  12. VITAMIN D [Concomitant]
     Active Substance: CHOLECALCIFEROL
  13. NASONEX [Concomitant]
     Active Substance: MOMETASONE FUROATE
  14. DIOVAN [Concomitant]
     Active Substance: VALSARTAN
  15. EPIPEN [Concomitant]
     Active Substance: EPINEPHRINE
  16. PRIVIGEN [Suspect]
     Active Substance: HUMAN IMMUNOGLOBULIN G
     Indication: SELECTIVE IGG SUBCLASS DEFICIENCY
     Dosage: 20 GM VIALS
     Route: 042

REACTIONS (3)
  - Gastroenteritis viral [Unknown]
  - Loss of consciousness [Unknown]
  - Fall [Unknown]
